FAERS Safety Report 12052012 (Version 1)
Quarter: 2016Q1

REPORT INFORMATION
  Report Type: Other
  Country: US (occurrence: US)
  Receive Date: 20160209
  Receipt Date: 20160209
  Transmission Date: 20160526
  Serious: Yes (Hospitalization)
  Sender: FDA-Public Use
  Company Number: US-B. BRAUN MEDICAL INC.-1047508

PATIENT
  Age: 71 Year
  Sex: Female

DRUGS (5)
  1. EPTIFIBATIDE. [Concomitant]
     Active Substance: EPTIFIBATIDE
  2. HEPARIN SODIUM AND DEXTROSE [Suspect]
     Active Substance: HEPARIN SODIUM
     Route: 042
  3. BIVALIRUDIN. [Concomitant]
     Active Substance: BIVALIRUDIN
  4. CLOPIDOGREL [Suspect]
     Active Substance: CLOPIDOGREL BISULFATE
  5. ACETYLSALICYLIC ACID [Suspect]
     Active Substance: ASPIRIN

REACTIONS (1)
  - Abdominal wall haematoma [None]
